FAERS Safety Report 5297046-0 (Version None)
Quarter: 2007Q1

REPORT INFORMATION
  Report Type: 
  Country: None (occurrence: None)
  Receive Date: 20070201
  Receipt Date: 20061003
  Transmission Date: 20070707
  Serious: No
  Sender: FDA-Public Use
  Company Number: 2006PV022458

PATIENT
  Age: 44 Year
  Sex: Female
  Weight: 89.3586 kg

DRUGS (16)
  1. BYETTA [Suspect]
     Indication: DIABETES MELLITUS NON-INSULIN-DEPENDENT
     Dosage: SEE IMAGE
     Dates: start: 20060922
  2. BYETTA [Suspect]
  3. REGLAN [Concomitant]
  4. GLUCOPHAGE [Concomitant]
  5. COMPAZINE [Concomitant]
  6. PHENERGAN HCL [Concomitant]
  7. NEUTROPIN [Concomitant]
  8. REQUIP [Concomitant]
  9. CARDIZEM [Concomitant]
  10. SYNTHROID [Concomitant]
  11. CYMBALTA [Concomitant]
  12. KLONAPIN [Concomitant]
  13. MAXAIR [Concomitant]
  14. ALBUTEROL [Concomitant]
  15. PERCOCET [Concomitant]
  16. NEXIUM [Concomitant]

REACTIONS (2)
  - BLOOD GLUCOSE INCREASED [None]
  - NAUSEA [None]
